FAERS Safety Report 14788985 (Version 1)
Quarter: 2018Q2

REPORT INFORMATION
  Report Type: Spontaneous
  Country: NZ (occurrence: NZ)
  Receive Date: 20180423
  Receipt Date: 20180423
  Transmission Date: 20180711
  Serious: Yes (Other)
  Sender: FDA-Public Use
  Company Number: NZ-CONCORDIA PHARMACEUTICALS INC.-GSH201804-001232

PATIENT
  Age: 64 Year
  Sex: Male

DRUGS (5)
  1. OXYCODONE [Suspect]
     Active Substance: OXYCODONE
     Route: 048
  2. NORTRIPTYLINE [Suspect]
     Active Substance: NORTRIPTYLINE
     Route: 048
  3. CLONIDINE. [Suspect]
     Active Substance: CLONIDINE
     Route: 062
  4. BACLOFEN. [Suspect]
     Active Substance: BACLOFEN
     Route: 048
  5. DIAZEPAM. [Suspect]
     Active Substance: DIAZEPAM
     Route: 048

REACTIONS (4)
  - Sedation [Unknown]
  - Psychotic disorder [Unknown]
  - Aggression [Unknown]
  - Hallucination [Unknown]
